FAERS Safety Report 8601928 (Version 4)
Quarter: 2012Q4

REPORT INFORMATION
  Report Type: 
  Country: US (occurrence: US)
  Receive Date: 20120606
  Receipt Date: 20121116
  Transmission Date: 20130627
  Serious: Yes (Hospitalization)
  Sender: FDA-Public Use
  Company Number: US-BAYER-2012-055464

PATIENT
  Age: 26 Year
  Sex: Female
  Weight: 145.13 kg

DRUGS (13)
  1. YAZ [Suspect]
     Indication: ACNE
     Dosage: UNK
     Dates: start: 20050101, end: 2008
  2. YAZ [Suspect]
     Indication: PREMENSTRUAL DYSPHORIC DISORDER
  3. YAZ [Suspect]
     Indication: PREMENSTRUAL SYNDROME
  4. YASMIN [Suspect]
     Indication: PREMENSTRUAL SYNDROME
     Dosage: UNK
     Dates: start: 2005, end: 2008
  5. YASMIN [Suspect]
     Indication: ACNE
     Dosage: UNK
  6. YASMIN [Suspect]
     Indication: PREMENSTRUAL DYSPHORIC DISORDER
  7. SERTRALINE [Concomitant]
     Dosage: 50 mg, UNK
     Dates: start: 20100723, end: 20120326
  8. NEXIUM [Concomitant]
     Dosage: 40 mg, UNK
  9. ZOLOFT [Concomitant]
     Dosage: 50 mg, UNK
  10. DILAUDID [Concomitant]
     Dosage: UNK
  11. FENTANYL [Concomitant]
     Dosage: UNK
     Route: 062
  12. TYLENOL #3 [Concomitant]
     Dosage: UNK
  13. SOMA [Concomitant]
     Dosage: UNK

REACTIONS (9)
  - Deep vein thrombosis [None]
  - Oedema peripheral [None]
  - Injury [None]
  - Pain [None]
  - General physical health deterioration [None]
  - Emotional distress [None]
  - Pain [None]
  - Anxiety [None]
  - Anhedonia [None]
